FAERS Safety Report 8406878-9 (Version None)
Quarter: 2012Q2

REPORT INFORMATION
  Report Type: 
  Country: None (occurrence: None)
  Receive Date: 20120604
  Receipt Date: 20120524
  Transmission Date: 20120825
  Serious: Yes (Death, Hospitalization)
  Sender: FDA-Public Use
  Company Number: NL-SANOFI-AVENTIS-2012SA018678

PATIENT
  Age: 60 Year
  Sex: Male
  Weight: 76 kg

DRUGS (14)
  1. BLINDED THERAPY [Suspect]
     Dosage: DAY 1 OF 21 DAY CYCLE (EVERY 3 WEEKS)
     Route: 042
     Dates: start: 20120203, end: 20120203
  2. TRIAMCINOLONE [Concomitant]
  3. BLINDED THERAPY [Suspect]
     Indication: NON-SMALL CELL LUNG CANCER STAGE IV
     Dosage: DAY 1 OF 21 DAY CYCLE (EVERY 3 WEEKS)
     Route: 042
     Dates: start: 20120113, end: 20120113
  4. SELUKOS [Concomitant]
  5. LORAZEPAM [Concomitant]
  6. LOPID [Concomitant]
  7. DEXAMETHASONE [Concomitant]
     Indication: PREMEDICATION
     Dates: start: 20120112, end: 20120204
  8. DOCETAXEL [Suspect]
     Dosage: DAY 1 OF 21 DAY CYCLE (EVERY 3 WEEKS)
     Route: 041
     Dates: start: 20120203, end: 20120203
  9. DOCETAXEL [Suspect]
     Indication: NON-SMALL CELL LUNG CANCER STAGE IV
     Dosage: DAY 1 OF 21 DAY CYCLE (EVERY 3 WEEKS)
     Route: 041
     Dates: start: 20120113, end: 20120113
  10. NAPROXEN [Concomitant]
  11. RANITIDINE [Concomitant]
  12. ATORVASTATIN CALCIUM [Concomitant]
  13. CALCIUM CARBONATE [Concomitant]
  14. EZETIMIBE [Concomitant]

REACTIONS (3)
  - DYSPNOEA [None]
  - HAEMOGLOBIN DECREASED [None]
  - OXYGEN SATURATION DECREASED [None]
